FAERS Safety Report 21155586 (Version 6)
Quarter: 2022Q4

REPORT INFORMATION
  Report Type: Spontaneous
  Country: ES (occurrence: ES)
  Receive Date: 20220801
  Receipt Date: 20221115
  Transmission Date: 20230112
  Serious: Yes (Hospitalization, Other)
  Sender: FDA-Public Use
  Company Number: ES-KRKA-ES2022K09070LIT

PATIENT
  Age: 81 Year
  Sex: Female

DRUGS (25)
  1. APIXABAN [Suspect]
     Active Substance: APIXABAN
     Indication: Cerebrovascular accident prophylaxis
     Dosage: 1-0-1
     Route: 065
     Dates: start: 202201, end: 202203
  2. FUROSEMIDE [Suspect]
     Active Substance: FUROSEMIDE
     Indication: Product used for unknown indication
     Dosage: 1-0-1/2
     Route: 065
     Dates: start: 202201, end: 202204
  3. FUROSEMIDE [Suspect]
     Active Substance: FUROSEMIDE
     Dosage: 1-0-1/2
     Route: 065
  4. EPLERENONE [Suspect]
     Active Substance: EPLERENONE
     Indication: Product used for unknown indication
     Dosage: 1/2-0-0
     Route: 065
     Dates: start: 202201, end: 202204
  5. EPLERENONE [Suspect]
     Active Substance: EPLERENONE
     Dosage: 1/2-0-0
     Route: 065
  6. ACENOCOUMAROL [Suspect]
     Active Substance: ACENOCOUMAROL
     Indication: Anticoagulant therapy
     Dosage: UNK
     Route: 065
     Dates: start: 2013, end: 202201
  7. ACENOCOUMAROL [Suspect]
     Active Substance: ACENOCOUMAROL
     Indication: Product used for unknown indication
  8. ENALAPRIL [Suspect]
     Active Substance: ENALAPRIL
     Indication: Product used for unknown indication
     Dosage: 1/2-0-1/ 2
     Route: 065
     Dates: start: 202201, end: 202204
  9. ENALAPRIL [Suspect]
     Active Substance: ENALAPRIL
     Dosage: 1/2-0-1/ 2
     Route: 065
  10. AMLODIPINE [Suspect]
     Active Substance: AMLODIPINE BESYLATE
     Indication: Hypertension
     Dosage: 5 MG, 1 PER DAY, 0-0-1
     Route: 065
  11. AMLODIPINE [Suspect]
     Active Substance: AMLODIPINE BESYLATE
     Dosage: 5 MG, 1 PER DAY, 0-0-1
     Route: 065
  12. AMLODIPINE [Suspect]
     Active Substance: AMLODIPINE BESYLATE
     Dosage: 5 MG, 1X PER DAY, 0-0-1
     Route: 065
  13. AMLODIPINE [Suspect]
     Active Substance: AMLODIPINE BESYLATE
     Route: 065
  14. AMLODIPINE [Suspect]
     Active Substance: AMLODIPINE BESYLATE
     Dosage: 5 MG, 1X PER DAY, 0-0-1
     Route: 065
  15. AMLODIPINE [Suspect]
     Active Substance: AMLODIPINE BESYLATE
     Dosage: 5 MG, 1X PER DAY, 0-0-1
     Route: 065
  16. METILDIGOXIN [Suspect]
     Active Substance: METILDIGOXIN
     Indication: Product used for unknown indication
     Dosage: 1-0-0
     Route: 065
     Dates: start: 202201, end: 202202
  17. BRINZOLAMIDE [Suspect]
     Active Substance: BRINZOLAMIDE
     Indication: Product used for unknown indication
     Dosage: 1-0-1
     Route: 065
     Dates: start: 202201, end: 202204
  18. IBANDRONIC ACID [Suspect]
     Active Substance: IBANDRONIC ACID
     Indication: Product used for unknown indication
     Dosage: 1-0-0
     Route: 065
     Dates: start: 202201, end: 202204
  19. MOMETASONE [Suspect]
     Active Substance: MOMETASONE
     Indication: Product used for unknown indication
     Route: 065
     Dates: start: 202201, end: 202204
  20. BETAMETHASONE\CALCIPOTRIENE [Suspect]
     Active Substance: BETAMETHASONE\CALCIPOTRIENE
     Indication: Product used for unknown indication
     Dosage: 50 MCG/0.5 MG/G GEL AND FOAM
     Route: 065
     Dates: start: 202201, end: 202204
  21. CHOLECALCIFEROL [Suspect]
     Active Substance: CHOLECALCIFEROL
     Indication: Product used for unknown indication
     Dosage: 25000 IU, PER MONTH
     Route: 065
  22. OMEPRAZOLE [Suspect]
     Active Substance: OMEPRAZOLE
     Indication: Product used for unknown indication
     Dosage: 1-0-0
     Route: 065
  23. ATORVASTATIN [Suspect]
     Active Substance: ATORVASTATIN
     Indication: Dyslipidaemia
     Dosage: 40 MG, 1X PER DAY, 0-0-1
     Route: 065
  24. METILDIGOXIN [Suspect]
     Active Substance: METILDIGOXIN
     Indication: Product used for unknown indication
     Dosage: 1-0-0
     Route: 065
  25. ACETAMINOPHEN [Concomitant]
     Active Substance: ACETAMINOPHEN
     Indication: Product used for unknown indication
     Dosage: UNK, AS NEEDED
     Route: 065

REACTIONS (7)
  - Dizziness [Unknown]
  - Medication error [Unknown]
  - Therapeutic product effect decreased [Unknown]
  - Bradycardia [Unknown]
  - Haematoma [Unknown]
  - Wound haemorrhage [Unknown]
  - Dyspnoea [Unknown]

NARRATIVE: CASE EVENT DATE: 20220201
